FAERS Safety Report 9326313 (Version 2)
Quarter: 2013Q3

REPORT INFORMATION
  Report Type: Report from Study
  Country: US (occurrence: US)
  Receive Date: 20130604
  Receipt Date: 20130815
  Transmission Date: 20140515
  Serious: Yes (Hospitalization)
  Sender: FDA-Public Use
  Company Number: US-GILEAD-2013-0075780

PATIENT
  Age: 47 Year
  Sex: Male

DRUGS (17)
  1. EMTRICITABINE/RILPIVIRINE/TENOFOVIR DF [Suspect]
     Indication: HIV INFECTION
     Dosage: 1 DF, QD
     Route: 048
     Dates: start: 20110628, end: 20130430
  2. MARIJUANA [Suspect]
     Indication: SUBSTANCE USE
     Route: 055
  3. RANITIDINE [Concomitant]
     Indication: GASTROOESOPHAGEAL REFLUX DISEASE
     Dosage: UNK
     Dates: start: 20110920
  4. SERTRALINE [Concomitant]
     Indication: ANXIETY
     Dosage: UNK
     Dates: start: 20121106
  5. GABAPENTIN [Concomitant]
     Indication: NEUROPATHY PERIPHERAL
     Dosage: UNK
     Dates: start: 20070601
  6. METOPROLOL [Concomitant]
     Indication: TACHYCARDIA
     Dosage: UNK
     Dates: start: 19950601
  7. CLOMIPRAMIN [Concomitant]
     Indication: SCHIZOAFFECTIVE DISORDER
     Dosage: UNK
     Dates: start: 20080601
  8. LAMOTRIGINE [Concomitant]
     Indication: BIPOLAR DISORDER
     Dosage: UNK
     Dates: start: 20070601
  9. ABILIFY [Concomitant]
     Indication: ANXIETY
     Dosage: UNK
     Dates: start: 20121106
  10. NAPROXEN [Concomitant]
     Indication: HEADACHE
     Dosage: UNK
     Dates: start: 20120813
  11. IBUPROFEN [Concomitant]
     Indication: BACK PAIN
     Dosage: UNK
     Dates: start: 20111129
  12. IBUPROFEN [Concomitant]
     Indication: SPINAL PAIN
  13. ASPIRIN [Concomitant]
     Indication: CARDIOVASCULAR EVENT PROPHYLAXIS
     Dosage: UNK
     Dates: start: 19950601
  14. LITHIUM [Concomitant]
     Indication: BIPOLAR DISORDER
     Dosage: UNK
     Dates: start: 20030601
  15. TRAZADOL [Concomitant]
     Indication: BIPOLAR DISORDER
     Dosage: UNK
     Dates: start: 20080601
  16. QUETIAPINE [Concomitant]
     Indication: SCHIZOAFFECTIVE DISORDER
     Dosage: UNK
     Dates: start: 20060601
  17. CETIRIZINE [Concomitant]
     Indication: HEADACHE
     Dosage: UNK
     Dates: start: 20120813

REACTIONS (1)
  - Transient ischaemic attack [Recovered/Resolved]
